FAERS Safety Report 7844525-5 (Version None)
Quarter: 2011Q4

REPORT INFORMATION
  Report Type: 
  Country: None (occurrence: None)
  Receive Date: 20111025
  Receipt Date: 20111011
  Transmission Date: 20120403
  Serious: Yes (Hospitalization)
  Sender: FDA-Public Use
  Company Number: US-BAYER-2011-009793

PATIENT
  Age: 25 Year
  Sex: Female
  Weight: 96.145 kg

DRUGS (9)
  1. YASMIN [Suspect]
     Indication: CONTRACEPTION
     Dosage: UNK
     Dates: start: 20011101, end: 20050801
  2. YASMIN [Suspect]
     Indication: CYST
  3. DROSPIRENONE AND ETHINYL ESTRADIOL [Suspect]
     Indication: CONTRACEPTION
     Dosage: UNK
     Dates: start: 20080701, end: 20090301
  4. DROSPIRENONE AND ETHINYL ESTRADIOL [Suspect]
     Indication: PREMENSTRUAL SYNDROME
  5. DROSPIRENONE AND ETHINYL ESTRADIOL [Suspect]
     Indication: MENSTRUATION IRREGULAR
  6. DROSPIRENONE AND ETHINYL ESTRADIOL [Suspect]
     Indication: CYST
  7. YASMIN [Suspect]
     Indication: PREMENSTRUAL SYNDROME
  8. YASMIN [Suspect]
     Indication: MENSTRUATION IRREGULAR
  9. CITALOPRAM HYDROBROMIDE [Concomitant]
     Indication: ANXIETY
     Dosage: UNK
     Dates: start: 20081101, end: 20081201

REACTIONS (3)
  - CHOLELITHIASIS [None]
  - PAIN [None]
  - INJURY [None]
